FAERS Safety Report 8971524 (Version 1)
Quarter: 2012Q4

REPORT INFORMATION
  Report Type: Report from Study
  Country: DE (occurrence: DE)
  Receive Date: 20121217
  Receipt Date: 20121217
  Transmission Date: 20130627
  Serious: Yes (Death)
  Sender: FDA-Public Use
  Company Number: DE-ABBOTT-12P-062-1023191-00

PATIENT
  Age: 80 Year
  Sex: Male

DRUGS (3)
  1. TRENANTONE [Suspect]
     Indication: PROSTATE CANCER
     Route: 058
     Dates: start: 20111212, end: 20120529
  2. ANTIANDROGENS [Concomitant]
     Indication: PROSTATE CANCER
     Dates: start: 20111212
  3. ANTIANDROGENS [Concomitant]
     Indication: PROPHYLAXIS

REACTIONS (4)
  - Multi-organ failure [Fatal]
  - Peritonitis [Fatal]
  - Pancreatitis acute [Fatal]
  - Cholecystitis [Fatal]
